FAERS Safety Report 8880269 (Version 1)
Quarter: 2012Q4

REPORT INFORMATION
  Report Type: 
  Country: US (occurrence: US)
  Receive Date: 20121031
  Receipt Date: 20121031
  Transmission Date: 20130627
  Serious: No
  Sender: FDA-Public Use
  Company Number: US-009507513-1210USA013877

PATIENT
  Age: 60 Year
  Sex: Male
  Weight: 108.84 kg

DRUGS (2)
  1. PEGINTRON [Suspect]
     Dosage: 150 mcg (0.5 ml)
     Route: 058
  2. LOSARTAN/HCT MSD [Concomitant]
     Dosage: 50-12.5

REACTIONS (3)
  - Fatigue [Unknown]
  - Arthralgia [Unknown]
  - Eating disorder [Unknown]
